FAERS Safety Report 12987059 (Version 2)
Quarter: 2016Q4

REPORT INFORMATION
  Report Type: Spontaneous
  Country: JP (occurrence: JP)
  Receive Date: 20161130
  Receipt Date: 20161201
  Transmission Date: 20170207
  Serious: Yes (Other)
  Sender: FDA-Public Use
  Company Number: JP-PURDUE PHARMA-GBR-2016-0041431

PATIENT
  Age: 85 Year

DRUGS (1)
  1. NORSPAN [Suspect]
     Active Substance: BUPRENORPHINE
     Indication: PAIN IN EXTREMITY
     Dosage: 5 MCG, Q1H
     Route: 062

REACTIONS (1)
  - Fracture [Unknown]
